FAERS Safety Report 19643815 (Version 1)
Quarter: 2021Q3

REPORT INFORMATION
  Report Type: Spontaneous
  Country: DE (occurrence: DE)
  Receive Date: 20210731
  Receipt Date: 20210731
  Transmission Date: 20211014
  Serious: Yes (Hospitalization)
  Sender: FDA-Public Use
  Company Number: NVSC2021DE168531

PATIENT
  Sex: Female

DRUGS (3)
  1. CLINDAMYCIN ARISTO [Suspect]
     Active Substance: CLINDAMYCIN
     Indication: DENTAL OPERATION
     Dosage: 600 MG, QD
     Route: 048
     Dates: start: 20210616, end: 202106
  2. NOVALGIN [Concomitant]
     Indication: POSTOPERATIVE ANALGESIA
     Dosage: UNK
     Route: 048
     Dates: start: 20210617, end: 20210617
  3. CLINDASOL [CLINDAMYCIN HYDROCHLORIDE] [Suspect]
     Active Substance: CLINDAMYCIN HYDROCHLORIDE
     Indication: DENTAL OPERATION
     Dosage: 600 MG, QD
     Route: 048
     Dates: start: 202106, end: 20210624

REACTIONS (2)
  - Angina pectoris [Recovered/Resolved]
  - Stomatitis [Recovered/Resolved]

NARRATIVE: CASE EVENT DATE: 202106
